FAERS Safety Report 4302916-3 (Version None)
Quarter: 2004Q1

REPORT INFORMATION
  Report Type: 
  Country: None (occurrence: None)
  Receive Date: 20040223
  Receipt Date: 20040223
  Transmission Date: 20041129
  Serious: No
  Sender: FDA-Public Use
  Company Number: None

PATIENT
  Age: 74 Year
  Sex: Female
  Weight: 85 kg

DRUGS (2)
  1. OXYTROL [Suspect]
     Indication: URGE INCONTINENCE
     Dosage: 1  TWICE WEEK  TRANSDERMAL
     Route: 062
     Dates: start: 20030927, end: 20031016
  2. ARTIFICIAL TEARS [Concomitant]

REACTIONS (4)
  - AMAUROSIS FUGAX [None]
  - BLINDNESS TRANSIENT [None]
  - CAROTID ARTERY STENOSIS [None]
  - CATARACT [None]
